FAERS Safety Report 8887391 (Version 3)
Quarter: 2012Q4

REPORT INFORMATION
  Report Type: 
  Country: JP (occurrence: JP)
  Receive Date: 20121105
  Receipt Date: 20121217
  Transmission Date: 20130627
  Serious: Yes (Hospitalization)
  Sender: FDA-Public Use
  Company Number: JP-US-EMD SERONO, INC.-7170718

PATIENT
  Age: 12 Year
  Sex: Female
  Weight: 21 kg

DRUGS (3)
  1. SAIZEN [Suspect]
     Indication: GROWTH HORMONE DEFICIENCY
     Route: 058
     Dates: start: 20120417, end: 20120514
  2. SAIZEN [Suspect]
     Route: 058
     Dates: start: 20120515, end: 20120531
  3. SAIZEN [Suspect]
     Route: 058
     Dates: start: 20120601, end: 20120611

REACTIONS (1)
  - Eating disorder [Not Recovered/Not Resolved]
